FAERS Safety Report 22516645 (Version 2)
Quarter: 2023Q2

REPORT INFORMATION
  Report Type: Spontaneous
  Country: IT (occurrence: IT)
  Receive Date: 20230603
  Receipt Date: 20230612
  Transmission Date: 20230721
  Serious: Yes (Hospitalization, Other)
  Sender: FDA-Public Use
  Company Number: IT-MINISAL02-926429

PATIENT
  Age: 72 Year
  Sex: Female

DRUGS (4)
  1. FLECAINIDE [Suspect]
     Active Substance: FLECAINIDE
     Indication: Arrhythmia
     Dosage: 50 MILLIGRAM, DAILY 1 AL D?
     Route: 048
     Dates: start: 2021, end: 20230523
  2. XARELTO [Concomitant]
     Active Substance: RIVAROXABAN
     Indication: Product used for unknown indication
     Dosage: UNK
     Route: 065
  3. ESOMEPRAZOLE [Concomitant]
     Active Substance: ESOMEPRAZOLE
     Indication: Product used for unknown indication
     Dosage: UNK
     Route: 065
  4. ENALAPRIL;LERCANIDIPINE [Concomitant]
     Indication: Product used for unknown indication
     Dosage: UNK
     Route: 065

REACTIONS (2)
  - Atrial fibrillation [Recovering/Resolving]
  - Drug ineffective [Recovering/Resolving]

NARRATIVE: CASE EVENT DATE: 20230416
